FAERS Safety Report 23118688 (Version 2)
Quarter: 2023Q4

REPORT INFORMATION
  Report Type: Report from Study
  Country: NL (occurrence: NL)
  Receive Date: 20231028
  Receipt Date: 20231122
  Transmission Date: 20240110
  Serious: Yes (Hospitalization)
  Sender: FDA-Public Use
  Company Number: NL-ABBVIE-5466207

PATIENT
  Age: 75 Year
  Sex: Female

DRUGS (9)
  1. CARBIDOPA\LEVODOPA [Suspect]
     Active Substance: CARBIDOPA\LEVODOPA
     Indication: Parkinson^s disease
     Dosage: MD: 9.2ML, CD: 4.5ML/H, ED: 2.0ML, ND: 0.0ML, CND: 2.3ML/H, END: 2.0ML? REMAINS AT 16 HOURS ROUTE
     Route: 050
     Dates: start: 20230502, end: 20230517
  2. CARBIDOPA\LEVODOPA [Suspect]
     Active Substance: CARBIDOPA\LEVODOPA
     Dosage: MD: 9.2ML, CD: 4.5ML/H, ED: 2.0ML, CND: 2.3ML/H?REMAINS AT 24 HOURS
     Route: 050
     Dates: start: 20230517, end: 20230627
  3. CARBIDOPA\LEVODOPA [Suspect]
     Active Substance: CARBIDOPA\LEVODOPA
     Dosage: REMAINS AT 24 HOURS
     Route: 050
     Dates: start: 20220822
  4. CARBIDOPA\LEVODOPA [Suspect]
     Active Substance: CARBIDOPA\LEVODOPA
     Dosage: MD 7.7 ML; CD 4.5 ML/H; ED 2.0 ML?REMAINS AT 24 HOURS
     Route: 050
     Dates: start: 20231107
  5. CARBIDOPA\LEVODOPA [Suspect]
     Active Substance: CARBIDOPA\LEVODOPA
     Dosage: MD: 9.2ML, CD: 4.5ML/H, ED: 2.0ML?REMAINS AT 16 HOURS
     Route: 050
     Dates: start: 20230627, end: 20230807
  6. CARBIDOPA\LEVODOPA [Suspect]
     Active Substance: CARBIDOPA\LEVODOPA
     Dosage: MD: 8.7ML, CD: 4.5ML/H, ED: 2.0ML, CND: 2.5ML/H?REMAINS AT 16 HOURS
     Route: 050
     Dates: start: 20230807, end: 20230921
  7. CARBIDOPA\LEVODOPA [Suspect]
     Active Substance: CARBIDOPA\LEVODOPA
     Dosage: MD: 8.7ML, CD: 4.5ML/H, ED: 2.0ML, ND: 0.0ML, CND: 2.5ML/H, END: 2.0ML?REMAINS AT 24 HOURS
     Route: 050
     Dates: start: 20230921, end: 20231107
  8. CARBIDOPA AND LEVODOPA [Concomitant]
     Active Substance: CARBIDOPA\LEVODOPA
     Indication: Parkinson^s disease
     Dosage: TIME INTERVAL: 0.16666667 DAYS: FORM STRENGTH: 250 MILLIGRAM
     Dates: start: 201601
  9. OXAZEPAM [Concomitant]
     Active Substance: OXAZEPAM
     Indication: Sleep disorder

REACTIONS (5)
  - Spinal compression fracture [Not Recovered/Not Resolved]
  - Syncope [Not Recovered/Not Resolved]
  - Dysstasia [Not Recovered/Not Resolved]
  - Device issue [Recovered/Resolved]
  - Back pain [Not Recovered/Not Resolved]

NARRATIVE: CASE EVENT DATE: 20230101
